FAERS Safety Report 17236754 (Version 1)
Quarter: 2019Q4

REPORT INFORMATION
  Report Type: Spontaneous
  Country: US (occurrence: US)
  Receive Date: 20191211
  Receipt Date: 20191211
  Transmission Date: 20200122
  Serious: No
  Sender: FDA-Public Use
  Company Number: None

PATIENT
  Age: 74 Year
  Sex: Male
  Weight: 121.56 kg

DRUGS (1)
  1. SEMAGLUTIDE [Suspect]
     Active Substance: SEMAGLUTIDE
     Indication: DIABETES MELLITUS
     Dosage: ?          OTHER FREQUENCY:QWEEK;?
     Route: 058
     Dates: start: 20190317, end: 20190415

REACTIONS (1)
  - Dyspepsia [None]

NARRATIVE: CASE EVENT DATE: 20190328
